FAERS Safety Report 20704245 (Version 1)
Quarter: 2022Q2

REPORT INFORMATION
  Report Type: Report from Study
  Country: FR (occurrence: FR)
  Receive Date: 20220413
  Receipt Date: 20220413
  Transmission Date: 20220721
  Serious: Yes (Other)
  Sender: FDA-Public Use
  Company Number: FR-JNJFOC-20220411041

PATIENT

DRUGS (5)
  1. REMICADE [Suspect]
     Active Substance: INFLIXIMAB
     Indication: Product used for unknown indication
     Route: 042
  2. SIMPONI [Suspect]
     Active Substance: GOLIMUMAB
     Indication: Product used for unknown indication
     Route: 058
  3. ETANERCEPT [Suspect]
     Active Substance: ETANERCEPT
     Indication: Product used for unknown indication
  4. ADALIMUMAB [Suspect]
     Active Substance: ADALIMUMAB
     Indication: Product used for unknown indication
     Route: 065
  5. CERTOLIZUMAB [Suspect]
     Active Substance: CERTOLIZUMAB
     Indication: Product used for unknown indication
     Route: 065

REACTIONS (19)
  - Bipolar disorder [Unknown]
  - Hallucination [Unknown]
  - Delirium [Unknown]
  - Mania [Unknown]
  - Mania [Unknown]
  - Mania [Unknown]
  - Mania [Unknown]
  - Behaviour disorder [Unknown]
  - Thinking abnormal [Unknown]
  - Judgement impaired [Unknown]
  - Persecutory delusion [Unknown]
  - Personality disorder [Unknown]
  - Abnormal behaviour [Unknown]
  - Aggression [Unknown]
  - Behaviour disorder [Unknown]
  - Paranoia [Unknown]
  - Depersonalisation/derealisation disorder [Unknown]
  - Psychomotor hyperactivity [Unknown]
  - Disturbance in sexual arousal [Unknown]
